FAERS Safety Report 6341481-6 (Version None)
Quarter: 2009Q3

REPORT INFORMATION
  Report Type: 
  Country: None (occurrence: None)
  Receive Date: 20090902
  Receipt Date: 20090902
  Transmission Date: 20100115
  Serious: Yes (Life-Threatening, Other)
  Sender: FDA-Public Use
  Company Number: None

PATIENT

DRUGS (1)
  1. HYDRODIURIL [Suspect]
     Dosage: 50 MILLIGRAMS

REACTIONS (3)
  - DRY EYE [None]
  - JOINT SWELLING [None]
  - STEVENS-JOHNSON SYNDROME [None]
